FAERS Safety Report 23059157 (Version 2)
Quarter: 2024Q1

REPORT INFORMATION
  Report Type: Spontaneous
  Country: JP (occurrence: JP)
  Receive Date: 20231012
  Receipt Date: 20240214
  Transmission Date: 20240409
  Serious: Yes (Other)
  Sender: FDA-Public Use
  Company Number: JP-INSMED-2023-03779-JPAA

PATIENT
  Age: 61 Year
  Sex: Female
  Weight: 41 kg

DRUGS (4)
  1. ARIKAYCE [Suspect]
     Active Substance: AMIKACIN
     Indication: Mycobacterium avium complex infection
     Dosage: 590 MILLIGRAM, QD
     Route: 055
     Dates: start: 20230519, end: 20230911
  2. CLARITHROMYCIN [Concomitant]
     Active Substance: CLARITHROMYCIN
     Indication: Mycobacterium avium complex infection
     Dosage: 400 MILLIGRAM, BID
     Route: 048
     Dates: start: 20200929
  3. ESANBUTOL HEXAL [Concomitant]
     Indication: Mycobacterium avium complex infection
     Dosage: 750 MILLIGRAM, QD
     Route: 048
     Dates: start: 20200929
  4. RIFADIN [Concomitant]
     Active Substance: RIFAMPIN
     Indication: Mycobacterium avium complex infection
     Dosage: 450 MILLIGRAM, QD
     Route: 048
     Dates: start: 20200929

REACTIONS (1)
  - Pneumatosis intestinalis [Not Recovered/Not Resolved]

NARRATIVE: CASE EVENT DATE: 20230905
